FAERS Safety Report 6179312-X (Version None)
Quarter: 2009Q2

REPORT INFORMATION
  Report Type: 
  Country: None (occurrence: None)
  Receive Date: 20090505
  Receipt Date: 20090501
  Transmission Date: 20091009
  Serious: Yes (Hospitalization)
  Sender: FDA-Public Use
  Company Number: US-ASTRAZENECA-2009UW10936

PATIENT
  Age: 64 Year
  Sex: Female

DRUGS (11)
  1. NEXIUM [Suspect]
     Indication: GASTROOESOPHAGEAL REFLUX DISEASE
     Route: 048
  2. ZOLOFT [Concomitant]
  3. LAMICTAL [Concomitant]
  4. ESTRADIOL [Concomitant]
  5. TRAZODONE HCL [Concomitant]
  6. DIFLUCAN [Concomitant]
  7. POTASSIUM CHLORIDE [Concomitant]
  8. CALCIUM [Concomitant]
  9. IRON [Concomitant]
  10. VITAMIN B-12 [Concomitant]
  11. MISOPROSTOL [Concomitant]

REACTIONS (1)
  - STAPHYLOCOCCAL INFECTION [None]
